FAERS Safety Report 9849627 (Version 2)
Quarter: 2014Q1

REPORT INFORMATION
  Report Type: Spontaneous
  Country: US (occurrence: US)
  Receive Date: 20140128
  Receipt Date: 20140224
  Transmission Date: 20141002
  Serious: No
  Sender: FDA-Public Use
  Company Number: US-PFIZER INC-2014024668

PATIENT
  Age: 56 Year
  Sex: Female
  Weight: 58.96 kg

DRUGS (3)
  1. LEVOXYL [Suspect]
     Indication: HYPOTHYROIDISM
     Dosage: 88 UG, 1X/DAY
     Dates: start: 1989, end: 20130404
  2. SYNTHROID [Suspect]
     Indication: HYPOTHYROIDISM
     Dosage: 75 UG, 1X/DAY
     Dates: start: 201304
  3. LORAZEPAM [Concomitant]
     Indication: ANXIETY
     Dosage: 2 MG, 4X/DAY

REACTIONS (4)
  - Malaise [Not Recovered/Not Resolved]
  - Feeling abnormal [Unknown]
  - Bedridden [Unknown]
  - Increased appetite [Unknown]
